FAERS Safety Report 6915702-2 (Version None)
Quarter: 2010Q3

REPORT INFORMATION
  Report Type: 
  Country: None (occurrence: None)
  Receive Date: 20100805
  Receipt Date: 20100723
  Transmission Date: 20110219
  Serious: Yes (Hospitalization)
  Sender: FDA-Public Use
  Company Number: DSU-2010-03591

PATIENT
  Sex: Male
  Weight: 73.9363 kg

DRUGS (3)
  1. BENICAR [Suspect]
     Indication: HYPERTENSION
     Dosage: 20 MG (20 MG, QD), PER ORAL, 10 MG (10 MG, 1/2 TABLET OF 20MG QD), PER ORAL
     Route: 048
  2. TOPROL-XL [Suspect]
     Indication: PALPITATIONS
     Dosage: 40 MG (40 MG, QD), PER ORAL
     Route: 048
  3. MIRALAX [Concomitant]

REACTIONS (8)
  - DIZZINESS [None]
  - DRUG PRESCRIBING ERROR [None]
  - HEART RATE DECREASED [None]
  - HYPOTENSION [None]
  - MUSCULAR WEAKNESS [None]
  - PNEUMONIA [None]
  - THERAPEUTIC RESPONSE UNEXPECTED [None]
  - WRONG TECHNIQUE IN DRUG USAGE PROCESS [None]
